FAERS Safety Report 6475064-4 (Version None)
Quarter: 2009Q4

REPORT INFORMATION
  Report Type: 
  Country: None (occurrence: None)
  Receive Date: 20091204
  Receipt Date: 20090707
  Transmission Date: 20100525
  Serious: Yes (Other)
  Sender: FDA-Public Use
  Company Number: US-ELI_LILLY_AND_COMPANY-US200903006749

PATIENT
  Sex: Male
  Weight: 112.38 kg

DRUGS (2)
  1. BYETTA [Suspect]
     Indication: TYPE 2 DIABETES MELLITUS
     Dosage: 5 UG, 2/D
     Dates: start: 20060509, end: 20060606
  2. BYETTA [Suspect]
     Dosage: 10 UG, 2/D
     Dates: start: 20060606, end: 20060613

REACTIONS (2)
  - PANCREATITIS [None]
  - WEIGHT DECREASED [None]
